FAERS Safety Report 5050473-9 (Version None)
Quarter: 2006Q2

REPORT INFORMATION
  Report Type: 
  Country: None (occurrence: None)
  Receive Date: 20060614
  Receipt Date: 20060222
  Transmission Date: 20061013
  Serious: Yes (Other)
  Sender: FDA-Public Use
  Company Number: 433652

PATIENT
  Age: 52 Year
  Sex: Female
  Weight: 59 kg

DRUGS (5)
  1. BONIVA [Suspect]
     Indication: OSTEOPOROSIS
     Dosage: 150 MG 1 PER MONTH ORAL
     Route: 048
     Dates: start: 20051115
  2. ACETAMINOPHEN [Suspect]
     Indication: RESPIRATORY TRACT INFECTION
     Dosage: ORAL
     Route: 048
     Dates: start: 20051213
  3. ALLEGRA [Concomitant]
  4. SINGULAIR [Concomitant]
  5. UNSPECIFIED DRUG (GENERIC UNKNOWN) [Concomitant]

REACTIONS (3)
  - ARTHRALGIA [None]
  - HEPATIC ENZYME INCREASED [None]
  - PAIN IN EXTREMITY [None]
